FAERS Safety Report 14190971 (Version 9)
Quarter: 2019Q4

REPORT INFORMATION
  Report Type: Spontaneous
  Country: KR (occurrence: KR)
  Receive Date: 20171115
  Receipt Date: 20191216
  Transmission Date: 20200122
  Serious: Yes (Other)
  Sender: FDA-Public Use
  Company Number: KR-009507513-1706KOR001207

PATIENT
  Age: 43 Year
  Sex: Female
  Weight: 68.3 kg

DRUGS (17)
  1. CEFEPIME [Concomitant]
     Active Substance: CEFEPIME HYDROCHLORIDE
     Dosage: 2 G, TID
     Route: 042
     Dates: start: 20170503, end: 20170506
  2. FOLIC ACID. [Concomitant]
     Active Substance: FOLIC ACID
     Indication: ROUTINE HEALTH MAINTENANCE
     Dosage: 1 MG, BID
     Route: 048
     Dates: start: 20170418
  3. PROPACETAMOL [Concomitant]
     Active Substance: PROPACETAMOL
     Indication: PYREXIA
     Dosage: 1 G, PRN
     Route: 042
     Dates: start: 20170417, end: 20170419
  4. DEXAMETHASONE. [Concomitant]
     Active Substance: DEXAMETHASONE
     Dosage: 5 MG, ONCE DAILY
     Route: 042
     Dates: start: 20170424, end: 20170424
  5. NOXAFIL [Suspect]
     Active Substance: POSACONAZOLE
     Indication: ANTIFUNGAL PROPHYLAXIS
     Dosage: 300 MG, BID (TWICE A DAY)
     Route: 048
     Dates: start: 20170418, end: 20170418
  6. DICKNOL [Concomitant]
     Active Substance: DICLOFENAC DEANOL
     Indication: PYREXIA
     Dosage: 45 MG, QD (ONCE DAILY)
     Route: 030
     Dates: start: 20170419, end: 20170419
  7. DEXAMETHASONE. [Concomitant]
     Active Substance: DEXAMETHASONE
     Indication: PYREXIA
     Dosage: 10 MG, ONCE DAILY
     Route: 042
     Dates: start: 20170419, end: 20170423
  8. DEXAMETHASONE. [Concomitant]
     Active Substance: DEXAMETHASONE
     Dosage: 5 MG, ONCE DAILY
     Route: 042
     Dates: start: 20170510, end: 20170511
  9. NOXAFIL [Suspect]
     Active Substance: POSACONAZOLE
     Dosage: 300 MG, QD
     Route: 048
     Dates: start: 20170419, end: 20170529
  10. CEFEPIME [Concomitant]
     Active Substance: CEFEPIME HYDROCHLORIDE
     Indication: PYREXIA
     Dosage: 2 G, TID (THREE TIMES DAY)
     Route: 042
     Dates: start: 20170418, end: 20170419
  11. PENNEL [Concomitant]
     Indication: ALANINE AMINOTRANSFERASE INCREASED
     Dosage: 1 CAPSULE, TID
     Route: 048
     Dates: start: 20170418, end: 20170518
  12. IDARUBICIN HYDROCHLORIDE. [Suspect]
     Active Substance: IDARUBICIN HYDROCHLORIDE
     Indication: ACUTE MYELOID LEUKAEMIA
     Dosage: 20 MILLIGRAM, QD (ONCE DAILY)
     Route: 042
     Dates: start: 20170420, end: 20170422
  13. CEFTRIAXONE. [Concomitant]
     Active Substance: CEFTRIAXONE
     Indication: PYREXIA
     Dosage: 2 G, QD (ONCE DAILY)
     Route: 042
     Dates: start: 20170418, end: 20170418
  14. B COMBIN [Concomitant]
     Indication: VITAMIN SUPPLEMENTATION
     Dosage: 1 TABLET, QD (ONCE DAILY)
     Route: 048
     Dates: start: 20170418
  15. CHLORPHENIRAMINE. [Concomitant]
     Active Substance: CHLORPHENIRAMINE
     Indication: ALLERGY PROPHYLAXIS
     Dosage: 4 MG, ONCE
     Route: 042
     Dates: start: 20170418, end: 20170418
  16. ADELAVIN (FLAVIN ADENINE DINUCLEOTIDE) [Concomitant]
     Indication: ALANINE AMINOTRANSFERASE INCREASED
     Dosage: 10 MG, BID (TWICE A DAY)
     Route: 042
     Dates: start: 20170418, end: 20170427
  17. FOLIC ACID. [Concomitant]
     Active Substance: FOLIC ACID
     Dosage: 1 MG, BID
     Route: 048
     Dates: start: 20170418

REACTIONS (10)
  - Aspartate aminotransferase increased [Recovered/Resolved]
  - Rash [Recovered/Resolved]
  - Abdominal pain upper [Recovered/Resolved]
  - Nausea [Recovered/Resolved]
  - Vomiting [Recovered/Resolved]
  - Rash erythematous [Recovered/Resolved]
  - Blood bilirubin increased [Recovered/Resolved]
  - Decreased appetite [Recovered/Resolved]
  - Refractoriness to platelet transfusion [Recovered/Resolved]
  - Hypertension [Recovering/Resolving]

NARRATIVE: CASE EVENT DATE: 20170419
